FAERS Safety Report 6379892-5 (Version None)
Quarter: 2009Q3

REPORT INFORMATION
  Report Type: 
  Country: None (occurrence: None)
  Receive Date: 20090928
  Receipt Date: 20090916
  Transmission Date: 20100115
  Serious: Yes (Other)
  Sender: FDA-Public Use
  Company Number: PHHY2009GB40272

PATIENT
  Sex: Male

DRUGS (2)
  1. CLOZARIL [Suspect]
     Indication: SCHIZOPHRENIA
     Dosage: 100MG MANE, 125MG NOCTE
     Dates: start: 20090902
  2. CLOZARIL [Suspect]
     Dosage: 225 MG IN THE EVENING
     Dates: start: 20090915

REACTIONS (5)
  - CHEST PAIN [None]
  - COUGH [None]
  - DRUG ADMINISTRATION ERROR [None]
  - SALIVARY HYPERSECRETION [None]
  - SOMNOLENCE [None]
